FAERS Safety Report 16808146 (Version 2)
Quarter: 2019Q4

REPORT INFORMATION
  Report Type: Not Available
  Country: US (occurrence: US)
  Receive Date: 20190916
  Receipt Date: 20191027
  Transmission Date: 20200122
  Serious: No
  Sender: FDA-Public Use
  Company Number: US-NEUROCRINE BIOSCIENCES INC.-2019NBI02583

PATIENT
  Age: 82 Year
  Sex: Male

DRUGS (12)
  1. INGREZZA [Suspect]
     Active Substance: VALBENAZINE
     Indication: TARDIVE DYSKINESIA
     Route: 048
     Dates: start: 20190824, end: 20190830
  2. INGREZZA [Suspect]
     Active Substance: VALBENAZINE
     Route: 048
     Dates: start: 2019
  3. LIPITCJR [Concomitant]
     Route: 048
  4. ACULAR LS [Concomitant]
     Active Substance: KETOROLAC TROMETHAMINE
     Dosage: 0.4 % DROPS, 1 DROP BOTH EYES
     Route: 047
  5. PACERDNE [Concomitant]
     Route: 048
  6. INGREZZA [Suspect]
     Active Substance: VALBENAZINE
     Dosage: IN THE EVENING
     Route: 048
     Dates: start: 20190831, end: 2019
  7. PARCDPA [Concomitant]
     Dosage: 25-100 MG PER DISINTEGRATING TABLET
     Route: 048
  8. DOCUSATE SODIUM. [Concomitant]
     Active Substance: DOCUSATE SODIUM
     Dosage: AT BEDTIME
     Route: 048
  9. ELIQUIS [Concomitant]
     Active Substance: APIXABAN
     Route: 048
  10. FLOWMAX [Concomitant]
     Route: 048
  11. PRLNLVLL,ZESTRLL [Concomitant]
     Route: 048
  12. BETIMOL [Concomitant]
     Active Substance: TIMOLOL
     Dosage: 1 DROP INTO BOTH EYES 2 TIMES A DAY
     Route: 047

REACTIONS (7)
  - Lethargy [Recovered/Resolved]
  - Cognitive disorder [Recovered/Resolved]
  - Sedation [Recovered/Resolved]
  - Tardive dyskinesia [Unknown]
  - Fall [Unknown]
  - Thirst [Unknown]
  - Insomnia [Unknown]

NARRATIVE: CASE EVENT DATE: 2019
